FAERS Safety Report 9681046 (Version 1)
Quarter: 2013Q4

REPORT INFORMATION
  Report Type: Spontaneous
  Country: US (occurrence: None)
  Receive Date: 20131108
  Receipt Date: 20131108
  Transmission Date: 20140711
  Serious: No
  Sender: FDA-Public Use
  Company Number: None

PATIENT
  Age: 65 Year
  Sex: Male
  Weight: 74.5 kg

DRUGS (1)
  1. BUDESONIDE/FORMOTEROL [Suspect]
     Indication: ASTHMA
     Route: 048
     Dates: start: 20120417, end: 20120427

REACTIONS (2)
  - Dizziness [None]
  - Activities of daily living impaired [None]
